FAERS Safety Report 25261472 (Version 2)
Quarter: 2025Q2

REPORT INFORMATION
  Report Type: Spontaneous
  Country: US (occurrence: US)
  Receive Date: 20250501
  Receipt Date: 20250520
  Transmission Date: 20250716
  Serious: Yes (Other)
  Sender: ABBVIE
  Company Number: US-ABBVIE-6261434

PATIENT
  Age: 94 Year
  Sex: Female

DRUGS (1)
  1. SYNTHROID [Suspect]
     Active Substance: LEVOTHYROXINE SODIUM
     Indication: Product used for unknown indication
     Route: 048

REACTIONS (8)
  - Thyroid cancer [Unknown]
  - Accident [Unknown]
  - Unevaluable event [Unknown]
  - Adverse drug reaction [Unknown]
  - Hypoacusis [Unknown]
  - Arthritis [Unknown]
  - Arthropathy [Unknown]
  - Speech disorder [Unknown]

NARRATIVE: CASE EVENT DATE: 20180101
